FAERS Safety Report 8198134-1 (Version None)
Quarter: 2012Q1

REPORT INFORMATION
  Report Type: 
  Country: None (occurrence: None)
  Receive Date: 20120309
  Receipt Date: 20111130
  Transmission Date: 20120608
  Serious: Yes (Hospitalization)
  Sender: FDA-Public Use
  Company Number: US-AMGEN-USASP2011063407

PATIENT
  Age: 78 Year
  Sex: Female

DRUGS (7)
  1. DEXAMETHASONE [Concomitant]
  2. PREMARIN [Concomitant]
  3. MULTI-VITAMIN [Concomitant]
  4. LANSOPRAZOLE [Concomitant]
  5. LOSARTAN POTASSIUM [Concomitant]
  6. PROLIA [Suspect]
     Indication: OSTEOPOROSIS POSTMENOPAUSAL
     Dosage: 60 MG, UNK
     Dates: start: 20101001
  7. CALCIUM WITH VITAMIN D [Concomitant]

REACTIONS (2)
  - ATRIAL FIBRILLATION [None]
  - ADVERSE DRUG REACTION [None]
